FAERS Safety Report 15383565 (Version 1)
Quarter: 2018Q3

REPORT INFORMATION
  Report Type: Spontaneous
  Country: FR (occurrence: FR)
  Receive Date: 20180913
  Receipt Date: 20180913
  Transmission Date: 20181010
  Serious: Yes (Hospitalization)
  Sender: FDA-Public Use
  Company Number: FR-009507513-1809FRA001756

PATIENT
  Age: 20 Year
  Sex: Female
  Weight: 52.8 kg

DRUGS (3)
  1. ANDROCUR [Concomitant]
     Active Substance: CYPROTERONE ACETATE
     Dosage: UNK
     Route: 048
  2. INTRON A [Suspect]
     Active Substance: INTERFERON ALFA-2B
     Indication: MALIGNANT MELANOMA
     Dosage: 20 MILLION IU, Q3W
     Route: 041
     Dates: start: 20140901, end: 20140908
  3. CERAZETTE [Concomitant]
     Dosage: UNK
     Route: 048

REACTIONS (4)
  - Hepatocellular injury [Recovered/Resolved]
  - Cholestasis [Recovered/Resolved]
  - Abdominal pain [Recovered/Resolved]
  - Asthenia [Recovered/Resolved]

NARRATIVE: CASE EVENT DATE: 201409
